FAERS Safety Report 6255676-3 (Version None)
Quarter: 2009Q3

REPORT INFORMATION
  Report Type: 
  Country: None (occurrence: None)
  Receive Date: 20090701
  Receipt Date: 20090617
  Transmission Date: 20100115
  Serious: Yes (Other)
  Sender: FDA-Public Use
  Company Number: DSU-2009-01256

PATIENT
  Sex: Male

DRUGS (2)
  1. AZOR [Suspect]
     Indication: HYPERTENSION
     Dosage: 5/20MG (QD), PER ORAL
     Route: 048
     Dates: start: 20090101, end: 20090601
  2. AMLODIPINE [Concomitant]

REACTIONS (3)
  - FATIGUE [None]
  - HYPOTENSION [None]
  - KNEE OPERATION [None]
